FAERS Safety Report 11129383 (Version 2)
Quarter: 2016Q2

REPORT INFORMATION
  Report Type: Spontaneous
  Country: CH (occurrence: BR)
  Receive Date: 20150521
  Receipt Date: 20160527
  Transmission Date: 20160815
  Serious: Yes (Hospitalization)
  Sender: FDA-Public Use
  Company Number: CH-LPDUSPRD-20150347

PATIENT
  Age: 52 Year
  Sex: Female
  Weight: 59 kg

DRUGS (3)
  1. AMYLOFER (IRON III) [Suspect]
     Active Substance: IRON POLYMALTOSE
     Dosage: DOSE NOT PROVIDED
     Route: 065
  2. VENOFER [Suspect]
     Active Substance: IRON SUCROSE
     Dosage: DOSE NOT PROVIDED
     Route: 065
  3. MALTOFER [Suspect]
     Active Substance: IRON POLYMALTOSE
     Dosage: DOSE NOT PROVIDED
     Route: 048

REACTIONS (2)
  - Deformity [Unknown]
  - Hypersensitivity [Unknown]
